FAERS Safety Report 19386191 (Version 1)
Quarter: 2021Q2

REPORT INFORMATION
  Report Type: Spontaneous
  Country: US (occurrence: US)
  Receive Date: 20210608
  Receipt Date: 20210608
  Transmission Date: 20210717
  Serious: Yes (Other)
  Sender: FDA-Public Use
  Company Number: US-PFIZER INC-2021593467

PATIENT
  Age: 73 Year
  Sex: Male

DRUGS (3)
  1. BEVACIZUMAB. [Suspect]
     Active Substance: BEVACIZUMAB
     Indication: NEOVASCULAR AGE-RELATED MACULAR DEGENERATION
     Dosage: 1.25 MG (INTRAVITREAL INJECTION)
  2. PROPARACAINE HYDROCHLORIDE. [Suspect]
     Active Substance: PROPARACAINE HYDROCHLORIDE
     Indication: ANAESTHESIA
     Dosage: UNK
  3. BETADINE [Suspect]
     Active Substance: POVIDONE-IODINE
     Dosage: UNK

REACTIONS (4)
  - Conjunctivitis bacterial [Recovered/Resolved]
  - Product use issue [Unknown]
  - Eye infection bacterial [Recovered/Resolved]
  - Off label use [Unknown]
